FAERS Safety Report 8404293-5 (Version None)
Quarter: 2012Q2

REPORT INFORMATION
  Report Type: 
  Country: None (occurrence: None)
  Receive Date: 20120601
  Receipt Date: 20120524
  Transmission Date: 20120825
  Serious: Yes (Other)
  Sender: FDA-Public Use
  Company Number: US-MPIJNJ-2012-03682

PATIENT
  Sex: Male
  Weight: 74.15 kg

DRUGS (7)
  1. RITUXIMAB [Suspect]
     Indication: MANTLE CELL LYMPHOMA
     Dosage: 780 MG, UNK
     Route: 042
     Dates: start: 20110128, end: 20110524
  2. DILAUDID [Concomitant]
     Indication: PAIN
     Dosage: 2 MG, PRN
     Dates: start: 20110719
  3. PERCOCET [Concomitant]
     Indication: PAIN
     Dosage: 7.5 MG, PRN
     Dates: start: 20111227
  4. VELCADE [Suspect]
     Indication: MANTLE CELL LYMPHOMA
     Dosage: 2 MG, UNK
     Route: 042
     Dates: start: 20110128, end: 20110527
  5. LORTAB [Concomitant]
     Indication: PAIN
     Dosage: 5 MG, PRN
     Dates: start: 20120222
  6. LENALIDOMIDE [Suspect]
     Indication: MANTLE CELL LYMPHOMA
     Dosage: 10 MG, UNK
     Route: 048
     Dates: start: 20110128, end: 20110531
  7. LYRICA [Concomitant]
     Indication: PAIN
     Dosage: 150 MG, BID
     Dates: start: 20120117

REACTIONS (2)
  - NEOPLASM MALIGNANT [None]
  - ANAL CANCER [None]
